FAERS Safety Report 14608276 (Version 7)
Quarter: 2018Q4

REPORT INFORMATION
  Report Type: Spontaneous
  Country: GR (occurrence: GR)
  Receive Date: 20180307
  Receipt Date: 20181025
  Transmission Date: 20190204
  Serious: Yes (Life-Threatening, Hospitalization, Other)
  Sender: FDA-Public Use
  Company Number: GR-BRISTOL-MYERS SQUIBB COMPANY-BMS-2018-018178

PATIENT
  Age: 76 Year
  Sex: Male

DRUGS (3)
  1. ASPIRIN                            /00002701/ [Interacting]
     Active Substance: ASPIRIN
     Indication: CARDIOVASCULAR EVENT PROPHYLAXIS
     Dosage: 100 MG, UNK
     Route: 065
  2. CLOPIDOGREL BISULFATE. [Interacting]
     Active Substance: CLOPIDOGREL BISULFATE
     Indication: ANTIPLATELET THERAPY
     Dosage: 75 MG, UNK
     Route: 065
  3. WARFARIN SODIUM. [Suspect]
     Active Substance: WARFARIN SODIUM
     Indication: ANTICOAGULANT THERAPY
     Dosage: 2 MG, DAILY
     Route: 065

REACTIONS (15)
  - Dressler^s syndrome [Recovered/Resolved]
  - Melaena [Recovered/Resolved]
  - Cardiac aneurysm [Unknown]
  - Product administration error [Unknown]
  - Cardiac tamponade [Recovered/Resolved]
  - Shock haemorrhagic [Recovered/Resolved]
  - Lactic acidosis [Recovered/Resolved]
  - Contraindicated product administered [Unknown]
  - Hypotension [Recovered/Resolved]
  - Renal injury [Recovered/Resolved]
  - Labelled drug-drug interaction medication error [Unknown]
  - Right ventricular diastolic collapse [Unknown]
  - Gastric haemorrhage [Recovered/Resolved]
  - Gastrointestinal haemorrhage [Recovered/Resolved]
  - Anaemia [Recovered/Resolved]
